FAERS Safety Report 7680124-6 (Version None)
Quarter: 2011Q3

REPORT INFORMATION
  Report Type: 
  Country: None (occurrence: None)
  Receive Date: 20110811
  Receipt Date: 20110811
  Transmission Date: 20111222
  Serious: Yes (Other)
  Sender: FDA-Public Use
  Company Number: None

PATIENT
  Sex: Female
  Weight: 100.6985 kg

DRUGS (2)
  1. AVELOX [Suspect]
     Indication: WOUND
     Dosage: 400 MG PO DAILY X TODAY
     Route: 048
     Dates: start: 20100902, end: 20100912
  2. AVELOX [Suspect]
     Indication: PREOPERATIVE CARE
     Dosage: 400 MG PO DAILY X TODAY
     Route: 048
     Dates: start: 20100902, end: 20100912

REACTIONS (11)
  - NAUSEA [None]
  - MALAISE [None]
  - BLISTER [None]
  - PAIN IN EXTREMITY [None]
  - PURULENCE [None]
  - BODY TEMPERATURE INCREASED [None]
  - PAIN [None]
  - HAEMOGLOBIN DECREASED [None]
  - STAPHYLOCOCCAL INFECTION [None]
  - CHILLS [None]
  - ASTHENIA [None]
